FAERS Safety Report 7555271-X (Version None)
Quarter: 2011Q2

REPORT INFORMATION
  Report Type: 
  Country: None (occurrence: None)
  Receive Date: 20110617
  Receipt Date: 20110606
  Transmission Date: 20111010
  Serious: Yes (Hospitalization, Other)
  Sender: FDA-Public Use
  Company Number: PHHY2009CA17384

PATIENT
  Sex: Female

DRUGS (3)
  1. SANDOSTATIN LAR [Suspect]
     Dosage: 40 MG, QMO
     Route: 030
  2. SANDOSTATIN LAR [Suspect]
     Indication: ACROMEGALY
     Dosage: 40 MG, EVERY 4 WEEKS
     Route: 030
     Dates: start: 20050910
  3. SANDOSTATIN LAR [Suspect]
     Dosage: 40 MG, EVERY 4 WEEKS
     Route: 030

REACTIONS (39)
  - PYREXIA [None]
  - NAUSEA [None]
  - BLOOD PRESSURE INCREASED [None]
  - CHEST PAIN [None]
  - INJECTION SITE INDURATION [None]
  - BLOOD GLUCOSE INCREASED [None]
  - BLOOD PRESSURE FLUCTUATION [None]
  - PAINFUL RESPIRATION [None]
  - LUNG INFECTION [None]
  - INJECTION SITE MASS [None]
  - SEPSIS [None]
  - MALAISE [None]
  - CHILLS [None]
  - ORAL FUNGAL INFECTION [None]
  - OCCULT BLOOD [None]
  - UTERINE MASS [None]
  - OROPHARYNGEAL PAIN [None]
  - MYOCARDIAL INFARCTION [None]
  - PNEUMONIA [None]
  - ANGIOPATHY [None]
  - DYSPNOEA [None]
  - PAIN [None]
  - VOMITING [None]
  - BLOOD GLUCOSE DECREASED [None]
  - NASOPHARYNGITIS [None]
  - FATIGUE [None]
  - HEADACHE [None]
  - INJECTION SITE PAIN [None]
  - HAEMATEMESIS [None]
  - MUSCLE SWELLING [None]
  - ASTHENIA [None]
  - MUSCULOSKELETAL DISCOMFORT [None]
  - COUGH [None]
  - DIABETES MELLITUS INADEQUATE CONTROL [None]
  - MUSCULOSKELETAL PAIN [None]
  - HAEMOPTYSIS [None]
  - PAIN IN EXTREMITY [None]
  - TREMOR [None]
  - DIZZINESS [None]
